FAERS Safety Report 13226244 (Version 2)
Quarter: 2017Q1

REPORT INFORMATION
  Report Type: Spontaneous
  Country: US (occurrence: US)
  Receive Date: 20170213
  Receipt Date: 20170220
  Transmission Date: 20170428
  Serious: No
  Sender: FDA-Public Use
  Company Number: US-PFIZER INC-2017057247

PATIENT
  Age: 74 Year
  Sex: Female
  Weight: 141.5 kg

DRUGS (1)
  1. XELJANZ XR [Suspect]
     Active Substance: TOFACITINIB CITRATE
     Indication: ARTHRITIS
     Dosage: 11 MG, 1X/DAY (ONCE DAILY IN THE MORNING)
     Route: 048
     Dates: start: 20170201

REACTIONS (8)
  - Cough [Recovering/Resolving]
  - Lymphadenopathy [Recovering/Resolving]
  - Chills [Recovering/Resolving]
  - Asthenia [Recovering/Resolving]
  - Respiratory tract infection viral [Unknown]
  - Drug ineffective [Unknown]
  - Upper respiratory tract infection [Recovering/Resolving]
  - Eye disorder [Recovering/Resolving]

NARRATIVE: CASE EVENT DATE: 20170210
